FAERS Safety Report 25361196 (Version 1)
Quarter: 2025Q2

REPORT INFORMATION
  Report Type: Report from Study
  Country: CA (occurrence: CA)
  Receive Date: 20250527
  Receipt Date: 20250527
  Transmission Date: 20250717
  Serious: Yes (Hospitalization, Other)
  Sender: ABBVIE
  Company Number: CA-ABBVIE-6298043

PATIENT
  Age: 81 Year
  Sex: Male

DRUGS (1)
  1. SKYRIZI [Suspect]
     Active Substance: RISANKIZUMAB-RZAA
     Indication: Psoriasis
     Dosage: LAST DOSE ON 20 MAY 2025
     Route: 058

REACTIONS (5)
  - Liver disorder [Unknown]
  - Gallbladder disorder [Unknown]
  - Renal failure [Unknown]
  - Blood creatinine increased [Unknown]
  - Anaemia [Unknown]

NARRATIVE: CASE EVENT DATE: 20250201
